FAERS Safety Report 4613624-3 (Version None)
Quarter: 2005Q1

REPORT INFORMATION
  Report Type: 
  Country: None (occurrence: None)
  Receive Date: 20050318
  Receipt Date: 20050318
  Transmission Date: 20050727
  Serious: Yes (Hospitalization)
  Sender: FDA-Public Use
  Company Number: None

PATIENT
  Age: 79 Year
  Sex: Male
  Weight: 78.5 kg

DRUGS (13)
  1. IBUPROFEN [Suspect]
     Indication: BACK PAIN
     Dosage: 4 DAYS PRIOR + UP TO ADMISSION
  2. ATENOLOL [Concomitant]
  3. TAMULOSIN [Concomitant]
  4. OMEPRAZOLE [Concomitant]
  5. FINASTERIDE [Concomitant]
  6. ASPIRIN [Concomitant]
  7. IRON [Concomitant]
  8. DOCUSATE [Concomitant]
  9. SIMVASTATIN [Concomitant]
  10. FENTANYL CITRATE [Concomitant]
  11. EPOGEN [Concomitant]
  12. FLUOXETINE [Concomitant]
  13. LISINOPRIL [Concomitant]

REACTIONS (2)
  - HYPERKALAEMIA [None]
  - RENAL FAILURE ACUTE [None]
